FAERS Safety Report 15370012 (Version 7)
Quarter: 2025Q2

REPORT INFORMATION
  Report Type: Report from Study
  Country: DE (occurrence: DE)
  Receive Date: 20180911
  Receipt Date: 20250417
  Transmission Date: 20250716
  Serious: Yes (Congenital Anomaly, Other)
  Sender: AUROBINDO
  Company Number: DE-AUROBINDO-AUR-APL-2018-045186

PATIENT
  Sex: Female

DRUGS (13)
  1. AMLODIPINE [Suspect]
     Active Substance: AMLODIPINE BESYLATE
     Indication: Foetal exposure during pregnancy
     Route: 064
  2. BISOPROLOL [Suspect]
     Active Substance: BISOPROLOL
     Indication: Foetal exposure during pregnancy
     Route: 064
  3. INDAPAMIDE [Suspect]
     Active Substance: INDAPAMIDE
     Indication: Foetal exposure during pregnancy
     Route: 064
  4. METFORMIN [Suspect]
     Active Substance: METFORMIN HYDROCHLORIDE
     Indication: Foetal exposure during pregnancy
     Route: 064
  5. HYDROCHLOROTHIAZIDE [Suspect]
     Active Substance: HYDROCHLOROTHIAZIDE
     Indication: Foetal exposure during pregnancy
     Route: 064
  6. METOPROLOL [Suspect]
     Active Substance: METOPROLOL
     Indication: Foetal exposure during pregnancy
     Route: 064
  7. INSULIN GLARGINE [Suspect]
     Active Substance: INSULIN GLARGINE
     Indication: Foetal exposure during pregnancy
     Route: 064
  8. ALISKIREN [Suspect]
     Active Substance: ALISKIREN
     Indication: Foetal exposure during pregnancy
     Route: 064
  9. FOLIC ACID [Suspect]
     Active Substance: FOLIC ACID
     Indication: Foetal exposure during pregnancy
     Route: 064
  10. INSULIN ASPART [Suspect]
     Active Substance: INSULIN ASPART
     Indication: Foetal exposure during pregnancy
     Route: 064
  11. PERINDOPRIL [Suspect]
     Active Substance: PERINDOPRIL
     Indication: Foetal exposure during pregnancy
     Route: 064
  12. METHYLDOPA [Suspect]
     Active Substance: METHYLDOPA
     Indication: Foetal exposure during pregnancy
     Route: 064
  13. INSULIN HUMAN [Suspect]
     Active Substance: INSULIN HUMAN
     Indication: Foetal exposure during pregnancy
     Route: 064

REACTIONS (2)
  - Conjoined twins [Unknown]
  - Foetal exposure during pregnancy [Recovered/Resolved]
